FAERS Safety Report 5083193-5 (Version None)
Quarter: 2006Q3

REPORT INFORMATION
  Report Type: 
  Country: None (occurrence: None)
  Receive Date: 20060724
  Receipt Date: 20031121
  Transmission Date: 20061208
  Serious: Yes (Hospitalization)
  Sender: FDA-Public Use
  Company Number: DRON00206001370

PATIENT
  Age: 61 Year
  Sex: Female
  Weight: 64 kg

DRUGS (4)
  1. MARINOL [Suspect]
     Indication: MULTIPLE SCLEROSIS
     Dosage: 1 DOSAGE FORM BID ORAL DAILY DOSE: FROM 2.5 MG TO 15 MG
     Dates: start: 20010904, end: 20011206
  2. MARINOL [Suspect]
     Indication: MUSCLE SPASTICITY
     Dosage: 1 DOSAGE FORM BID ORAL DAILY DOSE: FROM 2.5 MG TO 15 MG
     Dates: start: 20010904, end: 20011206
  3. PREMARIN [Concomitant]
  4. EVENING PRIMROSE OIL [Concomitant]

REACTIONS (3)
  - MUSCLE SPASMS [None]
  - MUSCULOSKELETAL STIFFNESS [None]
  - URINARY TRACT INFECTION [None]
